FAERS Safety Report 7338017-X (Version None)
Quarter: 2011Q1

REPORT INFORMATION
  Report Type: 
  Country: None (occurrence: None)
  Receive Date: 20110303
  Receipt Date: 20110303
  Transmission Date: 20110831
  Serious: Yes (Life-Threatening, Hospitalization, Other)
  Sender: FDA-Public Use
  Company Number: None

PATIENT
  Age: 62 Year
  Sex: Male
  Weight: 133.81 kg

DRUGS (1)
  1. OXALIPLATIN [Suspect]
     Indication: COLON CANCER STAGE III
     Dosage: 195 MG OTHER IV
     Route: 042
     Dates: start: 20100707, end: 20101208

REACTIONS (13)
  - SHOCK [None]
  - CAPILLARY LEAK SYNDROME [None]
  - RESPIRATORY ARREST [None]
  - HEART RATE INCREASED [None]
  - MULTI-ORGAN FAILURE [None]
  - IMMEDIATE POST-INJECTION REACTION [None]
  - ACUTE RESPIRATORY DISTRESS SYNDROME [None]
  - CARDIAC ARREST [None]
  - CYANOSIS [None]
  - PULMONARY OEDEMA [None]
  - DIZZINESS [None]
  - DRUG HYPERSENSITIVITY [None]
  - HAEMOCONCENTRATION [None]
